FAERS Safety Report 9374781 (Version 1)
Quarter: 2013Q2

REPORT INFORMATION
  Report Type: Spontaneous
  Country: US (occurrence: US)
  Receive Date: 20130628
  Receipt Date: 20130628
  Transmission Date: 20140414
  Serious: Yes (Other)
  Sender: FDA-Public Use
  Company Number: US-JNJFOC-20130613394

PATIENT
  Sex: 0

DRUGS (12)
  1. DOXORUBICIN HYDROCHLORIDE [Suspect]
     Indication: MANTLE CELL LYMPHOMA
     Route: 042
  2. RITUXIMAB [Suspect]
     Indication: MANTLE CELL LYMPHOMA
     Route: 065
  3. METHOTREXATE [Suspect]
     Indication: MANTLE CELL LYMPHOMA
     Dosage: 6.7 G/M2
     Route: 065
  4. METHOTREXATE [Suspect]
     Indication: MANTLE CELL LYMPHOMA
     Dosage: 4.2 G/M2
     Route: 065
  5. CYCLOPHOSPHAMIDE [Suspect]
     Indication: MANTLE CELL LYMPHOMA
     Route: 065
  6. VINCRISTINE [Suspect]
     Indication: MANTLE CELL LYMPHOMA
     Route: 065
  7. G-CSF [Suspect]
     Indication: MANTLE CELL LYMPHOMA
     Route: 065
  8. IFOSFAMIDE [Suspect]
     Indication: MANTLE CELL LYMPHOMA
     Route: 065
  9. MESNA [Suspect]
     Indication: MANTLE CELL LYMPHOMA
     Route: 065
  10. ETOPOSIDE [Suspect]
     Indication: MANTLE CELL LYMPHOMA
     Route: 065
  11. CYTARABINE [Suspect]
     Indication: MANTLE CELL LYMPHOMA
     Route: 065
  12. THALIDOMIDE [Suspect]
     Indication: MANTLE CELL LYMPHOMA

REACTIONS (2)
  - Mantle cell lymphoma recurrent [Unknown]
  - Nephropathy toxic [Unknown]
